FAERS Safety Report 22709551 (Version 5)
Quarter: 2023Q4

REPORT INFORMATION
  Report Type: Spontaneous
  Country: US (occurrence: US)
  Receive Date: 20230717
  Receipt Date: 20231010
  Transmission Date: 20240110
  Serious: No
  Sender: FDA-Public Use
  Company Number: US-002147023-NVSC2023US157340

PATIENT
  Age: 29 Year
  Sex: Female

DRUGS (4)
  1. VOTRIENT [Suspect]
     Active Substance: PAZOPANIB HYDROCHLORIDE
     Indication: Neoplasm malignant
     Dosage: 800 MG, QD
     Route: 048
     Dates: start: 202305
  2. VOTRIENT [Suspect]
     Active Substance: PAZOPANIB HYDROCHLORIDE
     Indication: Malignant connective tissue neoplasm
  3. XTANDI [Suspect]
     Active Substance: ENZALUTAMIDE
     Indication: Neoplasm malignant
     Dosage: 160 MG, QD
     Route: 048
     Dates: start: 202307
  4. SIROLIMUS [Concomitant]
     Active Substance: SIROLIMUS
     Indication: Neoplasm malignant
     Dosage: UNK
     Route: 065

REACTIONS (6)
  - Emotional disorder [Unknown]
  - Mood swings [Unknown]
  - Diarrhoea [Unknown]
  - Constipation [Unknown]
  - Abdominal pain [Unknown]
  - Off label use [Unknown]

NARRATIVE: CASE EVENT DATE: 20230701
